FAERS Safety Report 5601546-0 (Version None)
Quarter: 2008Q1

REPORT INFORMATION
  Report Type: 
  Country: None (occurrence: None)
  Receive Date: 20080124
  Receipt Date: 20080115
  Transmission Date: 20080703
  Serious: Yes (Other)
  Sender: FDA-Public Use
  Company Number: IE-ABBOTT-08P-229-0433634-00

PATIENT
  Sex: Female

DRUGS (3)
  1. HUMIRA [Suspect]
     Indication: RHEUMATOID ARTHRITIS
     Dosage: PEN
     Dates: start: 20071001, end: 20071001
  2. HUMIRA [Suspect]
     Dosage: PEN
  3. HUMIRA [Suspect]
     Dosage: SYRINGE
     Dates: start: 20070601, end: 20071001

REACTIONS (3)
  - EYE INFECTION [None]
  - INJECTION SITE BRUISING [None]
  - INJECTION SITE PAIN [None]
